FAERS Safety Report 15129642 (Version 1)
Quarter: 2018Q3

REPORT INFORMATION
  Report Type: Spontaneous
  Country: US (occurrence: US)
  Receive Date: 20180711
  Receipt Date: 20180711
  Transmission Date: 20181010
  Serious: No
  Sender: FDA-Public Use
  Company Number: US-SA-2018SA184131

PATIENT
  Age: 33 Year
  Sex: Female
  Weight: 47.17 kg

DRUGS (14)
  1. MULTIVITAMINS [VITAMINS NOS] [Concomitant]
     Dosage: 1 CAP, QD
     Route: 048
     Dates: start: 20160428
  2. TYLENOL EXTRA STRENGTH [Concomitant]
     Active Substance: ACETAMINOPHEN
     Dosage: 1 DOSE AS NEEDED
     Route: 048
     Dates: start: 20160428
  3. CEREZYME [Suspect]
     Active Substance: IMIGLUCERASE
     Dosage: 3600 UNITS/KG, QOW
     Route: 041
  4. BACTRIM DS [Concomitant]
     Active Substance: SULFAMETHOXAZOLE\TRIMETHOPRIM
     Dosage: 1 TAB
     Route: 048
     Dates: start: 20180529
  5. SODIUM CHLORIDE. [Concomitant]
     Active Substance: SODIUM CHLORIDE
     Indication: FLUSHING
     Dosage: UNK
     Dates: start: 20180411
  6. CEPHALEXINE [Concomitant]
     Active Substance: CEPHALEXIN
     Dosage: 1 CAP
     Route: 048
     Dates: start: 20170430
  7. FAMOTIDINE. [Concomitant]
     Active Substance: FAMOTIDINE
     Dosage: 1 TAB, 1?2 TIMES DAILY
     Route: 048
     Dates: start: 20170101
  8. EPINEPHRINE. [Concomitant]
     Active Substance: EPINEPHRINE
     Indication: ANAPHYLACTIC REACTION
     Dosage: UNK
     Dates: start: 20180411
  9. DOXYCYCLINE. [Concomitant]
     Active Substance: DOXYCYCLINE
     Dosage: 1 CAP, BID
     Route: 048
     Dates: start: 20161003
  10. OXYBUTYNIN. [Concomitant]
     Active Substance: OXYBUTYNIN CHLORIDE
     Dosage: UNK UNK, BID
     Route: 048
     Dates: start: 20170406
  11. OXYCODONE [Concomitant]
     Active Substance: OXYCODONE
     Dosage: 1 TAB AS NEEDED
     Route: 048
     Dates: start: 20171020
  12. METHADONE [Concomitant]
     Active Substance: METHADONE HYDROCHLORIDE
     Dosage: 1 TAB
     Route: 048
     Dates: start: 20180411
  13. GABAPENTIN. [Concomitant]
     Active Substance: GABAPENTIN
     Dosage: 1 CAP, QD
     Dates: start: 20170104
  14. VITAMIN C [ASCORBIC ACID] [Concomitant]
     Dosage: 1 CAP, QD
     Route: 048
     Dates: start: 20160428

REACTIONS (1)
  - Urinary tract infection [Unknown]

NARRATIVE: CASE EVENT DATE: 201806
